FAERS Safety Report 19517741 (Version 1)
Quarter: 2021Q3

REPORT INFORMATION
  Report Type: Spontaneous
  Country: AU (occurrence: AU)
  Receive Date: 20210712
  Receipt Date: 20210712
  Transmission Date: 20211014
  Serious: Yes (Hospitalization)
  Sender: FDA-Public Use
  Company Number: AU-AMGEN-AUSSP2021104184

PATIENT
  Age: 60 Year
  Sex: Female

DRUGS (6)
  1. ENDONE [Concomitant]
     Active Substance: OXYCODONE HYDROCHLORIDE
     Indication: SPINAL DEFORMITY
     Dosage: UNK
     Dates: start: 202102
  2. ENDONE [Concomitant]
     Active Substance: OXYCODONE HYDROCHLORIDE
     Indication: THROAT TIGHTNESS
  3. PANADOL [Concomitant]
     Active Substance: ACETAMINOPHEN
     Indication: THROAT TIGHTNESS
  4. NEULASTA [Suspect]
     Active Substance: PEGFILGRASTIM
     Indication: CHEMOTHERAPY SIDE EFFECT PROPHYLAXIS
     Dosage: UNK
     Route: 065
     Dates: start: 202102, end: 202102
  5. PANADOL [Concomitant]
     Active Substance: ACETAMINOPHEN
     Indication: SPINAL DEFORMITY
     Dosage: UNK
     Dates: start: 20210219
  6. PANADOL [Concomitant]
     Active Substance: ACETAMINOPHEN
     Indication: BONE PAIN

REACTIONS (8)
  - Throat tightness [Unknown]
  - Bone pain [Unknown]
  - Spinal deformity [Unknown]
  - Odynophagia [Unknown]
  - Arthralgia [Unknown]
  - Headache [Unknown]
  - Diarrhoea [Unknown]
  - Gait disturbance [Not Recovered/Not Resolved]

NARRATIVE: CASE EVENT DATE: 202102
